FAERS Safety Report 11536837 (Version 1)
Quarter: 2015Q3

REPORT INFORMATION
  Report Type: Spontaneous
  Country: FR (occurrence: FR)
  Receive Date: 20150922
  Receipt Date: 20150922
  Transmission Date: 20151125
  Serious: Yes (Hospitalization)
  Sender: FDA-Public Use
  Company Number: FR-B.I. PHARMACEUTICALS,INC./RIDGEFIELD-2015-BI-50804FF

PATIENT
  Age: 62 Year
  Sex: Female

DRUGS (1)
  1. PRADAXA [Suspect]
     Active Substance: DABIGATRAN ETEXILATE MESYLATE
     Indication: ATRIAL FIBRILLATION
     Route: 048
     Dates: start: 201310, end: 201509

REACTIONS (8)
  - Abdominal pain upper [Unknown]
  - Depressed mood [Recovered/Resolved]
  - Abdominal distension [Unknown]
  - Intestinal obstruction [Recovered/Resolved]
  - Hyperhidrosis [Unknown]
  - Ageusia [Recovered/Resolved]
  - Weight increased [Not Recovered/Not Resolved]
  - Drug intolerance [Recovered/Resolved]

NARRATIVE: CASE EVENT DATE: 201509
